FAERS Safety Report 4721516-4 (Version None)
Quarter: 2005Q3

REPORT INFORMATION
  Report Type: 
  Country: None (occurrence: None)
  Receive Date: 20050721
  Receipt Date: 20041101
  Transmission Date: 20060218
  Serious: No
  Sender: FDA-Public Use
  Company Number: US-BRISTOL-MYERS SQUIBB COMPANY-12752028

PATIENT
  Age: 72 Year
  Sex: Female
  Weight: 50 kg

DRUGS (7)
  1. COUMADIN [Suspect]
     Indication: APPENDICITIS PERFORATED
     Dosage: PRESENT DOSE 5 DAYS AT 4.5 MG AND 3 DAYS AT 3.0 MG
     Route: 048
     Dates: start: 20021101
  2. ATENOLOL [Concomitant]
  3. SYNTHROID [Concomitant]
  4. AMIODARONE [Concomitant]
  5. MULTI-VITAMIN [Concomitant]
  6. CALCIUM + VITAMIN D [Concomitant]
  7. IRON [Concomitant]

REACTIONS (1)
  - CYANOSIS [None]
